FAERS Safety Report 14912049 (Version 1)
Quarter: 2018Q2

REPORT INFORMATION
  Report Type: Spontaneous
  Country: US (occurrence: US)
  Receive Date: 20180518
  Receipt Date: 20180518
  Transmission Date: 20180711
  Serious: No
  Sender: FDA-Public Use
  Company Number: US-PFIZER INC-2018201616

PATIENT
  Age: 12 Year
  Sex: Male
  Weight: 64 kg

DRUGS (2)
  1. GENOTROPIN [Suspect]
     Active Substance: SOMATROPIN
     Dosage: UNK
     Dates: start: 201712, end: 20180115
  2. LETROZOLE. [Concomitant]
     Active Substance: LETROZOLE
     Indication: GROWTH RETARDATION
     Dosage: 2.5 MG, DAILY
     Route: 048
     Dates: start: 20170614

REACTIONS (2)
  - Food intolerance [Not Recovered/Not Resolved]
  - Eczema [Not Recovered/Not Resolved]

NARRATIVE: CASE EVENT DATE: 201712
